FAERS Safety Report 4674068-1 (Version None)
Quarter: 2005Q2

REPORT INFORMATION
  Report Type: 
  Country: None (occurrence: None)
  Receive Date: 20050525
  Receipt Date: 20050513
  Transmission Date: 20051028
  Serious: Yes (Hospitalization, Other)
  Sender: FDA-Public Use
  Company Number: KII-2005-0016596

PATIENT
  Age: 48 Year
  Sex: Female

DRUGS (5)
  1. OXYCONTIN [Suspect]
     Indication: PAIN
     Dosage: ORAL
     Route: 048
  2. FENTANYL [Suspect]
  3. LORAZEPAM [Suspect]
     Dosage: ORAL
     Route: 048
  4. VENLAFAXINE HCL [Suspect]
     Dosage: ORAL
     Route: 048
  5. COCAINE (COCAINE) [Suspect]

REACTIONS (12)
  - AGITATION [None]
  - BLOOD PRESSURE INCREASED [None]
  - CRYING [None]
  - DEPRESSED LEVEL OF CONSCIOUSNESS [None]
  - DISORIENTATION [None]
  - DRUG ABUSER [None]
  - DRUG WITHDRAWAL SYNDROME [None]
  - DYSKINESIA [None]
  - LETHARGY [None]
  - PAIN [None]
  - RESPIRATORY RATE INCREASED [None]
  - SEDATION [None]
